FAERS Safety Report 24778736 (Version 4)
Quarter: 2025Q2

REPORT INFORMATION
  Report Type: Spontaneous
  Country: US (occurrence: US)
  Receive Date: 20241226
  Receipt Date: 20250619
  Transmission Date: 20250716
  Serious: No
  Sender: SANOFI AVENTIS
  Company Number: US-SA-2024SA381068

PATIENT
  Age: 56 Year
  Sex: Female

DRUGS (2)
  1. DUPIXENT [Suspect]
     Active Substance: DUPILUMAB
     Indication: Neurodermatitis
     Dosage: 300 MG, QOW
     Route: 058
     Dates: start: 20240827
  2. DUPIXENT [Suspect]
     Active Substance: DUPILUMAB
     Indication: Dermatitis atopic

REACTIONS (7)
  - Nausea [Recovered/Resolved]
  - Inflammation [Recovered/Resolved]
  - Brain fog [Recovered/Resolved]
  - Headache [Recovered/Resolved]
  - Neurodermatitis [Unknown]
  - Hypersensitivity [Unknown]
  - Injection site pain [Unknown]

NARRATIVE: CASE EVENT DATE: 20240827
